FAERS Safety Report 18462497 (Version 3)
Quarter: 2022Q4

REPORT INFORMATION
  Report Type: Report from Study
  Country: US (occurrence: US)
  Receive Date: 20201104
  Receipt Date: 20221209
  Transmission Date: 20230113
  Serious: Yes (Other)
  Sender: FDA-Public Use
  Company Number: US-BRISTOL-MYERS SQUIBB COMPANY-BMS-2020-091310

PATIENT
  Age: 50 Year
  Sex: Male
  Weight: 112.6 kg

DRUGS (5)
  1. NIVOLUMAB [Suspect]
     Active Substance: NIVOLUMAB
     Indication: Bladder transitional cell carcinoma
     Dosage: UNK
     Route: 042
     Dates: start: 20200720, end: 20200720
  2. NIVOLUMAB [Suspect]
     Active Substance: NIVOLUMAB
     Dosage: UNK
     Route: 042
     Dates: start: 20201026, end: 20201026
  3. IPILIMUMAB [Suspect]
     Active Substance: IPILIMUMAB
     Indication: Bladder transitional cell carcinoma
     Dosage: UNK
     Route: 042
     Dates: start: 20200720, end: 20200720
  4. CABOZANTINIB [Suspect]
     Active Substance: CABOZANTINIB
     Indication: Bladder transitional cell carcinoma
     Route: 048
     Dates: start: 20200720, end: 20200928
  5. PREDNISONE [Suspect]
     Active Substance: PREDNISONE
     Indication: Product used for unknown indication
     Dosage: UNK
     Route: 065

REACTIONS (4)
  - Anaemia [Not Recovered/Not Resolved]
  - Haematuria [Not Recovered/Not Resolved]
  - Skin ulcer [Not Recovered/Not Resolved]
  - Hypocalcaemia [Not Recovered/Not Resolved]

NARRATIVE: CASE EVENT DATE: 20201013
